FAERS Safety Report 15812561 (Version 1)
Quarter: 2019Q1

REPORT INFORMATION
  Report Type: Spontaneous
  Country: US (occurrence: US)
  Receive Date: 20190110
  Receipt Date: 20190110
  Transmission Date: 20190417
  Serious: No
  Sender: FDA-Public Use
  Company Number: None

PATIENT
  Age: 63 Year
  Sex: Female
  Weight: 56.25 kg

DRUGS (2)
  1. ZITHROMAX [Concomitant]
     Active Substance: AZITHROMYCIN DIHYDRATE
  2. NYSTATIN 100,000 UNIT/MLSUSP COMMON BRANDS MYCOSTATIN [Suspect]
     Active Substance: NYSTATIN
     Indication: ORAL CANDIDIASIS
     Dosage: ?          QUANTITY:5 ML;?
     Route: 048
     Dates: start: 20190110, end: 20190110

REACTIONS (6)
  - Vomiting [None]
  - Product physical issue [None]
  - Oral discomfort [None]
  - Retching [None]
  - Product taste abnormal [None]
  - Product odour abnormal [None]

NARRATIVE: CASE EVENT DATE: 20190110
